FAERS Safety Report 16739738 (Version 6)
Quarter: 2022Q1

REPORT INFORMATION
  Report Type: Spontaneous
  Country: NL (occurrence: NL)
  Receive Date: 20190826
  Receipt Date: 20220103
  Transmission Date: 20220423
  Serious: Yes (Other)
  Sender: FDA-Public Use
  Company Number: None

PATIENT
  Age: 60 Year
  Sex: Male
  Weight: 60 kg

DRUGS (6)
  1. DEXAMETHASONE [Suspect]
     Active Substance: DEXAMETHASONE
     Indication: Plasma cell myeloma
     Dosage: UNK
     Route: 065
  2. LENALIDOMIDE [Suspect]
     Active Substance: LENALIDOMIDE
     Indication: Plasma cell myeloma
     Dosage: UNK
     Route: 065
  3. LENALIDOMIDE [Suspect]
     Active Substance: LENALIDOMIDE
     Dosage: 25 MILLIGRAM
     Route: 048
  4. KYPROLIS [Suspect]
     Active Substance: CARFILZOMIB
     Indication: Plasma cell myeloma
     Dosage: 34 MILLIGRAM, (27 MG/SQ. METER)
     Route: 042
     Dates: start: 20190709
  5. KYPROLIS [Suspect]
     Active Substance: CARFILZOMIB
     Dosage: 34 MILLIGRAM,(27 MG/SQ. METER)
     Route: 042
     Dates: start: 20190226
  6. KYPROLIS [Suspect]
     Active Substance: CARFILZOMIB
     Dosage: 34 MILLIGRAM,(27 MG/SQ. METER)
     Route: 042
     Dates: start: 20200114

REACTIONS (2)
  - Leukopenia [Recovered/Resolved]
  - Muscle spasms [Recovering/Resolving]

NARRATIVE: CASE EVENT DATE: 20190801
